FAERS Safety Report 8580103-0 (Version None)
Quarter: 2012Q3

REPORT INFORMATION
  Report Type: 
  Country: None (occurrence: None)
  Receive Date: 20120808
  Receipt Date: 20120806
  Transmission Date: 20120928
  Serious: Yes (Other)
  Sender: FDA-Public Use
  Company Number: CA-BAYER-2012-079674

PATIENT
  Age: 39 Year
  Sex: Female

DRUGS (2)
  1. BETASERON [Suspect]
     Indication: MULTIPLE SCLEROSIS
     Dosage: UNK
     Dates: start: 20040101
  2. TRILEPTAL [Concomitant]
     Indication: EPILEPSY

REACTIONS (3)
  - MULTIPLE SCLEROSIS RELAPSE [None]
  - HEMIPLEGIA [None]
  - FATIGUE [None]
